FAERS Safety Report 24561523 (Version 1)
Quarter: 2024Q4

REPORT INFORMATION
  Report Type: Spontaneous
  Country: US (occurrence: None)
  Receive Date: 20241029
  Receipt Date: 20241029
  Transmission Date: 20250115
  Serious: Yes (Hospitalization)
  Sender: Public
  Company Number: None

PATIENT
  Sex: Female

DRUGS (11)
  1. TACROLIMUS [Suspect]
     Active Substance: TACROLIMUS
     Indication: Renal transplant
     Dosage: OTHER FREQUENCY : EVERY MORNING AND EVERY EVENING;?FREQ: TAKE 4 CAPSULES (2 MG) BY MOUTH EVERY MORNI
     Route: 048
     Dates: start: 20161206
  2. ALBUTEROL SULFATE [Concomitant]
     Active Substance: ALBUTEROL SULFATE
  3. BACTRIM [Concomitant]
     Active Substance: SULFAMETHOXAZOLE\TRIMETHOPRIM
  4. FLEXALL MAX GEL [Concomitant]
  5. MAGNESIUM [Concomitant]
     Active Substance: MAGNESIUM
  6. MELATONIN [Concomitant]
     Active Substance: MELATONIN
  7. MULTI VITAMIN TAB MINERALS [Concomitant]
  8. MYFORTIC [Concomitant]
     Active Substance: MYCOPHENOLATE SODIUM
  9. OMEGA-3 ACIDS [Concomitant]
     Active Substance: OMEGA-3 FATTY ACIDS
  10. PROBIOTICS NOS [Concomitant]
     Active Substance: PROBIOTICS NOS
  11. HERBALS\TURMERIC [Concomitant]
     Active Substance: HERBALS\TURMERIC

REACTIONS (1)
  - Atrial fibrillation [None]
